FAERS Safety Report 6709960-7 (Version None)
Quarter: 2010Q2

REPORT INFORMATION
  Report Type: 
  Country: None (occurrence: None)
  Receive Date: 20100429
  Receipt Date: 20100420
  Transmission Date: 20101027
  Serious: Yes (Death, Life-Threatening, Hospitalization)
  Sender: FDA-Public Use
  Company Number: 8049180

PATIENT
  Sex: Female
  Weight: 35 kg

DRUGS (10)
  1. KEPPRA [Suspect]
     Dosage: 1G QD ORAL
     Route: 048
     Dates: start: 20090301
  2. RETROVIR [Suspect]
     Indication: EXPOSURE TO COMMUNICABLE DISEASE
     Dosage: 100 MG TID ORAL
     Route: 048
     Dates: start: 20090301
  3. BACTRIM [Suspect]
     Indication: PROPHYLAXIS
     Dosage: 1 DF THREE TIMES A DAY ORAL
     Route: 048
     Dates: start: 20090301
  4. TELZIR /01644801/ (TELZIR) (NOT SPECIFIED) [Suspect]
     Indication: EXPOSURE TO COMMUNICABLE DISEASE
     Dosage: 1.4 G BID ORAL
     Route: 048
     Dates: start: 20090301
  5. NORVIR (NORVIR) (NOT SPECIFIED) [Suspect]
     Indication: EXPOSURE TO COMMUNICABLE DISEASE
     Dosage: 100 MG BID ORAL
     Route: 048
     Dates: start: 20090301
  6. ISENTRESS [Suspect]
     Indication: EXPOSURE TO COMMUNICABLE DISEASE
     Dosage: 2 DF DAILY
     Dates: start: 20090301
  7. FUREZON [Concomitant]
  8. VITAMIN B12 /0056201/ [Concomitant]
  9. IMOVANE [Concomitant]
  10. ACYCLOVIR [Concomitant]

REACTIONS (5)
  - ANAEMIA MACROCYTIC [None]
  - FEBRILE CONVULSION [None]
  - HAEMORRHAGIC STROKE [None]
  - HERPES ZOSTER [None]
  - THROMBOCYTOPENIA [None]
